FAERS Safety Report 10365528 (Version 1)
Quarter: 2014Q3

REPORT INFORMATION
  Report Type: Spontaneous
  Country: US (occurrence: None)
  Receive Date: 20140805
  Receipt Date: 20140805
  Transmission Date: 20150326
  Serious: Yes (Other)
  Sender: FDA-Public Use
  Company Number: None

PATIENT
  Age: 51 Year
  Sex: Male
  Weight: 85.28 kg

DRUGS (2)
  1. VALPROIC ACID. [Suspect]
     Active Substance: VALPROIC ACID
     Indication: CONVULSION
     Dosage: 500  TID  ORAL
     Route: 048
     Dates: start: 20121220, end: 20140804
  2. TOPIRAMATE. [Suspect]
     Active Substance: TOPIRAMATE
     Indication: CONVULSION
     Route: 048
     Dates: start: 20121220, end: 20140804

REACTIONS (3)
  - Mental disorder [None]
  - Encephalopathy [None]
  - Confusional state [None]

NARRATIVE: CASE EVENT DATE: 20140709
